FAERS Safety Report 6911663-0 (Version None)
Quarter: 2010Q3

REPORT INFORMATION
  Report Type: 
  Country: None (occurrence: None)
  Receive Date: 20100806
  Receipt Date: 20100730
  Transmission Date: 20110219
  Serious: Yes (Hospitalization)
  Sender: FDA-Public Use
  Company Number: PHHO2009GB15679

PATIENT
  Sex: Male

DRUGS (2)
  1. NEORAL [Suspect]
     Dosage: FOETAL DRUG EXPOSURE VIA FATHER
  2. MYCOPHENOLATE MOFETIL [Suspect]
     Dosage: FOETAL DRUG EXPOSURE VIA FATHER

REACTIONS (9)
  - CONGENITAL EPIGLOTTAL ANOMALY [None]
  - DRUG EXPOSURE DURING PREGNANCY [None]
  - DYSPNOEA [None]
  - EPIGLOTTIDECTOMY [None]
  - LARYNGEAL OPERATION [None]
  - LARYNGOMALACIA [None]
  - REFLUX GASTRITIS [None]
  - STRIDOR [None]
  - TACHYPNOEA [None]
